FAERS Safety Report 11209353 (Version 1)
Quarter: 2015Q2

REPORT INFORMATION
  Report Type: Spontaneous
  Country: CO (occurrence: CO)
  Receive Date: 20150622
  Receipt Date: 20150622
  Transmission Date: 20150821
  Serious: Yes (Other)
  Sender: FDA-Public Use
  Company Number: PHHY2015CO071969

PATIENT
  Age: 53 Year
  Sex: Female

DRUGS (1)
  1. GENTAMICIN. [Suspect]
     Active Substance: GENTAMICIN
     Indication: BURNS THIRD DEGREE
     Route: 030

REACTIONS (4)
  - Angioedema [Unknown]
  - Respiratory distress [Unknown]
  - Urticaria [Unknown]
  - Hypersensitivity [Unknown]
